FAERS Safety Report 19570780 (Version 2)
Quarter: 2021Q3

REPORT INFORMATION
  Report Type: Spontaneous
  Country: US (occurrence: US)
  Receive Date: 20210715
  Receipt Date: 20210728
  Transmission Date: 20211014
  Serious: No
  Sender: FDA-Public Use
  Company Number: US-KARYOPHARM-2021KPT000674

PATIENT

DRUGS (3)
  1. XPOVIO [Suspect]
     Active Substance: SELINEXOR
     Dosage: 80 MG, 2X/WEEK
     Route: 048
     Dates: start: 2021, end: 202107
  2. VELCADE [Concomitant]
     Active Substance: BORTEZOMIB
     Indication: PLASMA CELL MYELOMA
  3. XPOVIO [Suspect]
     Active Substance: SELINEXOR
     Indication: PLASMA CELL MYELOMA
     Dosage: 80 MG, WEEKLY
     Route: 048
     Dates: start: 20210503, end: 2021

REACTIONS (11)
  - Anosmia [Unknown]
  - Platelet count decreased [Unknown]
  - Diarrhoea [Unknown]
  - Cognitive disorder [Unknown]
  - Nausea [Recovering/Resolving]
  - Fatigue [Not Recovered/Not Resolved]
  - Ageusia [Unknown]
  - Confusional state [Unknown]
  - Red blood cell count decreased [Unknown]
  - Plasma cell myeloma [Unknown]
  - Decreased appetite [Unknown]

NARRATIVE: CASE EVENT DATE: 202105
